FAERS Safety Report 9174058 (Version 1)
Quarter: 2013Q1

REPORT INFORMATION
  Report Type: Spontaneous
  Country: FR (occurrence: FR)
  Receive Date: 20130320
  Receipt Date: 20130320
  Transmission Date: 20140127
  Serious: Yes (Other)
  Sender: FDA-Public Use
  Company Number: FR-SHIRE-ALL1-2013-01424

PATIENT
  Age: 70 Year
  Sex: Male

DRUGS (2)
  1. XAGRID [Suspect]
     Indication: ESSENTIAL THROMBOCYTHAEMIA
     Dosage: 2 DF (CAPSULES), 1X/DAY:QD
     Route: 048
     Dates: start: 2010
  2. ASPERGIC [Concomitant]
     Indication: PRODUCT USED FOR UNKNOWN INDICATION
     Dosage: UNK, UNKNOWN
     Route: 065

REACTIONS (2)
  - Mitral valve incompetence [Unknown]
  - Renal failure acute [Unknown]
